FAERS Safety Report 5637887-0 (Version None)
Quarter: 2008Q1

REPORT INFORMATION
  Report Type: 
  Country: None (occurrence: None)
  Receive Date: 20080220
  Receipt Date: 20080214
  Transmission Date: 20080703
  Serious: Yes (Other)
  Sender: FDA-Public Use
  Company Number: CHPA2008US02852

PATIENT
  Age: 54 Year
  Sex: Male

DRUGS (1)
  1. EX-LAX REG STR CHOCOLATED LAX PCS SEN (NCH)(SENNA GLYCOSIDES (CA SALTS [Suspect]
     Indication: CONSTIPATION
     Dosage: 30 MG, QD, ORAL
     Route: 048
     Dates: start: 20080210, end: 20080213

REACTIONS (3)
  - DRUG INEFFECTIVE [None]
  - HAEMATOCHEZIA [None]
  - HAEMORRHAGE [None]
